FAERS Safety Report 20330495 (Version 1)
Quarter: 2022Q1

REPORT INFORMATION
  Report Type: Report from Study
  Country: DE (occurrence: DE)
  Receive Date: 20220113
  Receipt Date: 20220113
  Transmission Date: 20220423
  Serious: Yes (Other)
  Sender: FDA-Public Use
  Company Number: DE-NOVARTISPH-NVSC2022DE003801

PATIENT
  Sex: Female
  Weight: 42 kg

DRUGS (10)
  1. MAYZENT [Suspect]
     Active Substance: SIPONIMOD
     Indication: Secondary progressive multiple sclerosis
     Dosage: 2 MG, QD
     Route: 048
     Dates: start: 20210830
  2. ZOPICLONE [Concomitant]
     Active Substance: ZOPICLONE
     Indication: African trypanosomiasis
     Dosage: 7.5 MG, QD
     Route: 065
     Dates: start: 20211208
  3. PREGABALIN [Concomitant]
     Active Substance: PREGABALIN
     Indication: Neuralgia
     Dosage: 75 MG, QD
     Route: 065
     Dates: start: 20211123
  4. PREGABALIN [Concomitant]
     Active Substance: PREGABALIN
     Dosage: 200 MG, QD
     Route: 065
     Dates: start: 20211015, end: 20211123
  5. PREGABALIN [Concomitant]
     Active Substance: PREGABALIN
     Dosage: 75 MG, QD
     Route: 065
     Dates: start: 20200807, end: 20211015
  6. MOVICOL [Concomitant]
     Active Substance: POLYETHYLENE GLYCOL 3350\POTASSIUM CHLORIDE\SODIUM BICARBONATE\SODIUM CHLORIDE
     Indication: Constipation
     Dosage: 1 SAC, QD
     Route: 065
     Dates: start: 20211015, end: 20211015
  7. PROLIA [Concomitant]
     Active Substance: DENOSUMAB
     Indication: Osteoporosis
     Dosage: 60 MG, QD
     Route: 065
     Dates: start: 20120821
  8. DALFAMPRIDINE [Concomitant]
     Active Substance: DALFAMPRIDINE
     Indication: Gait disturbance
     Dosage: 10 MG, QD
     Route: 065
     Dates: start: 20120327
  9. TIZANIDINE [Concomitant]
     Active Substance: TIZANIDINE
     Indication: Muscle spasticity
     Dosage: 2 MG, QD
     Route: 065
     Dates: start: 20110223
  10. CHOLECALCIFEROL [Concomitant]
     Active Substance: CHOLECALCIFEROL
     Indication: Vitamin D
     Dosage: 20000 IU, QD
     Route: 065
     Dates: start: 20090807

REACTIONS (3)
  - Leukopenia [Not Recovered/Not Resolved]
  - Lymphopenia [Not Recovered/Not Resolved]
  - Muscle tightness [Not Recovered/Not Resolved]

NARRATIVE: CASE EVENT DATE: 20210929
